FAERS Safety Report 8489631-X (Version None)
Quarter: 2012Q3

REPORT INFORMATION
  Report Type: 
  Country: None (occurrence: None)
  Receive Date: 20120705
  Receipt Date: 20120627
  Transmission Date: 20120928
  Serious: Yes (Other)
  Sender: FDA-Public Use
  Company Number: US-US-EMD SERONO, INC.-232607J09USA

PATIENT
  Sex: Female
  Weight: 62 kg

DRUGS (7)
  1. ALBUTEROL [Concomitant]
     Indication: WHEEZING
     Route: 065
  2. LEVOTHYROXINE SODIUM [Concomitant]
     Indication: HYPOTHYROIDISM
     Route: 065
  3. ACTONEL [Concomitant]
     Indication: OSTEOPENIA
     Route: 065
  4. ATIVAN [Concomitant]
     Indication: PRODUCT USED FOR UNKNOWN INDICATION
     Route: 065
  5. CELEXA [Concomitant]
     Indication: DEPRESSION
     Route: 065
  6. ATROVENT [Concomitant]
     Indication: WHEEZING
     Route: 065
  7. REBIF [Suspect]
     Indication: RELAPSING-REMITTING MULTIPLE SCLEROSIS
     Route: 058
     Dates: start: 20090730

REACTIONS (2)
  - RENAL CYST [None]
  - NEPHROPATHY [None]
